FAERS Safety Report 7866637-2 (Version None)
Quarter: 2011Q4

REPORT INFORMATION
  Report Type: 
  Country: None (occurrence: None)
  Receive Date: 20111028
  Receipt Date: 20110719
  Transmission Date: 20120403
  Serious: No
  Sender: FDA-Public Use
  Company Number: US-GLAXOSMITHKLINE-A0937321A

PATIENT
  Age: 72 Year
  Sex: Male

DRUGS (11)
  1. HUMIRA [Concomitant]
  2. ASPIRIN [Concomitant]
  3. LEVOTHYROXINE SODIUM [Concomitant]
  4. PROAIR HFA [Concomitant]
  5. CITRACAL [Concomitant]
  6. PRILOSEC [Concomitant]
  7. ADVAIR DISKUS 100/50 [Suspect]
     Indication: ASTHMA
     Dosage: 1PUFF TWICE PER DAY
     Route: 055
     Dates: start: 20090101
  8. PREDNISONE [Concomitant]
  9. SIMVASTATIN [Concomitant]
  10. IRON [Concomitant]
  11. CENTRUM SILVER [Concomitant]

REACTIONS (3)
  - BREATH SOUNDS ABNORMAL [None]
  - DYSPHONIA [None]
  - PRODUCT QUALITY ISSUE [None]
